FAERS Safety Report 15987549 (Version 6)
Quarter: 2020Q1

REPORT INFORMATION
  Report Type: Spontaneous
  Country: RU (occurrence: RU)
  Receive Date: 20190220
  Receipt Date: 20200312
  Transmission Date: 20200409
  Serious: Yes (Death, Life-Threatening, Hospitalization, Other)
  Sender: FDA-Public Use
  Company Number: RU-PFIZER INC-2019072731

PATIENT
  Age: 34 Year
  Sex: Male

DRUGS (13)
  1. AMIKACIN. [Concomitant]
     Active Substance: AMIKACIN
     Indication: CYTOMEGALOVIRUS INFECTION
     Dosage: UNK
     Dates: start: 201608
  2. DORIPENEM. [Concomitant]
     Active Substance: DORIPENEM
     Indication: CYTOMEGALOVIRUS INFECTION
     Dosage: UNK
     Dates: start: 201608
  3. MEROPENEM. [Concomitant]
     Active Substance: MEROPENEM
     Indication: CYTOMEGALOVIRUS INFECTION
     Dosage: UNK
     Dates: start: 201608
  4. TACROLIMUS. [Concomitant]
     Active Substance: TACROLIMUS
     Dosage: 0.05 MG/KG, UNK
     Dates: start: 2016
  5. ANIDULAFUNGIN [Concomitant]
     Active Substance: ANIDULAFUNGIN
     Indication: CYTOMEGALOVIRUS INFECTION
     Dosage: UNK
     Dates: start: 201608
  6. CEFTAZIDIME. [Concomitant]
     Active Substance: CEFTAZIDIME
     Indication: CYTOMEGALOVIRUS INFECTION
     Dosage: UNK
     Dates: start: 201608
  7. CICLOSPORIN [Suspect]
     Active Substance: CYCLOSPORINE
     Indication: GRAFT VERSUS HOST DISEASE IN GASTROINTESTINAL TRACT
     Dosage: 3 MG/KG, UNK
     Dates: start: 20161026, end: 201611
  8. COLISTIMETHATE SODIUM. [Concomitant]
     Active Substance: COLISTIMETHATE SODIUM
     Indication: CYTOMEGALOVIRUS INFECTION
     Dosage: UNK
     Dates: start: 201608
  9. SULFAMETHOXAZOLE, TRIMETHOPRIM [Concomitant]
     Active Substance: SULFAMETHOXAZOLE\TRIMETHOPRIM
     Indication: CYTOMEGALOVIRUS INFECTION
     Dosage: UNK
     Dates: start: 201608
  10. GANCICLOVIR. [Concomitant]
     Active Substance: GANCICLOVIR
     Indication: CYTOMEGALOVIRUS INFECTION
     Dosage: UNK
     Dates: start: 201608
  11. MOXIFLOXACIN. [Concomitant]
     Active Substance: MOXIFLOXACIN
     Indication: CYTOMEGALOVIRUS INFECTION
     Dosage: UNK
     Dates: start: 201608
  12. METHYLPREDNISOLONE. [Suspect]
     Active Substance: METHYLPREDNISOLONE
     Indication: GRAFT VERSUS HOST DISEASE IN GASTROINTESTINAL TRACT
     Dosage: 2 MG/KG, UNK
     Dates: start: 20161026
  13. AZATHIOPRINE. [Concomitant]
     Active Substance: AZATHIOPRINE
     Indication: MYELODYSPLASTIC SYNDROME
     Dosage: UNK (3 COURSES OF 5-AZATHIOPRINE THERAPY)
     Dates: start: 201603, end: 201606

REACTIONS (9)
  - Tachycardia [Recovered/Resolved]
  - Drug ineffective [Recovered/Resolved]
  - Respiratory failure [Recovered/Resolved]
  - Septic shock [Unknown]
  - Vomiting [Recovered/Resolved]
  - Gastrointestinal haemorrhage [Unknown]
  - Impaired gastric emptying [Recovered/Resolved]
  - Blood pressure decreased [Recovered/Resolved]
  - Diarrhoea [Recovered/Resolved]

NARRATIVE: CASE EVENT DATE: 201611
